FAERS Safety Report 18430905 (Version 1)
Quarter: 2020Q4

REPORT INFORMATION
  Report Type: Spontaneous
  Country: US (occurrence: US)
  Receive Date: 20201026
  Receipt Date: 20201026
  Transmission Date: 20210114
  Serious: Yes (Disabling)
  Sender: FDA-Public Use
  Company Number: None

PATIENT
  Age: 27 Year
  Sex: Female
  Weight: 57.15 kg

DRUGS (1)
  1. ALDACTONE [Suspect]
     Active Substance: SPIRONOLACTONE
     Indication: ACNE
     Dates: start: 20200110, end: 20200915

REACTIONS (3)
  - Fungal infection [None]
  - Bacterial vaginosis [None]
  - Urinary tract infection [None]

NARRATIVE: CASE EVENT DATE: 20200217
